FAERS Safety Report 7022354-2 (Version None)
Quarter: 2010Q3

REPORT INFORMATION
  Report Type: 
  Country: None (occurrence: None)
  Receive Date: 20100930
  Receipt Date: 20100922
  Transmission Date: 20110219
  Serious: Yes (Death, Hospitalization, Other)
  Sender: FDA-Public Use
  Company Number: CA-ROCHE-719557

PATIENT
  Sex: Female
  Weight: 141.7 kg

DRUGS (2)
  1. AVASTIN [Suspect]
     Route: 042
     Dates: start: 20100205, end: 20100513
  2. TAXANES [Suspect]
     Indication: PRODUCT USED FOR UNKNOWN INDICATION
     Route: 065

REACTIONS (5)
  - ASCITES [None]
  - HEPATIC ENCEPHALOPATHY [None]
  - HEPATIC FAILURE [None]
  - HEPATIC FUNCTION ABNORMAL [None]
  - JAUNDICE [None]
